FAERS Safety Report 16916076 (Version 1)
Quarter: 2019Q4

REPORT INFORMATION
  Report Type: Spontaneous
  Country: CA (occurrence: CA)
  Receive Date: 20191014
  Receipt Date: 20191014
  Transmission Date: 20200122
  Serious: Yes (Other)
  Sender: FDA-Public Use
  Company Number: CA-TEVA-2019-CA-1119821

PATIENT
  Age: 57 Year
  Sex: Female

DRUGS (16)
  1. UBIDECARENONE [Concomitant]
     Active Substance: UBIDECARENONE
  2. ERGOCALCIFEROL. [Concomitant]
     Active Substance: ERGOCALCIFEROL
  3. NAPROXEN. [Concomitant]
     Active Substance: NAPROXEN
  4. DEXPANTHENOL/ERGOCALCIFEROL/NICOTINAMIDE/PYRIDOXINE/RIBOFLAVIN/THIAMIN [Concomitant]
  5. ZINC. [Concomitant]
     Active Substance: ZINC
  6. TAMOXIFEN [Suspect]
     Active Substance: TAMOXIFEN
     Indication: BREAST CANCER METASTATIC
     Route: 065
  7. IBRANCE [Suspect]
     Active Substance: PALBOCICLIB
     Indication: BREAST CANCER METASTATIC
     Dosage: 100 MILLIGRAM DAILY;
     Route: 048
  8. CAPECITABINE. [Suspect]
     Active Substance: CAPECITABINE
     Indication: BREAST CANCER METASTATIC
     Route: 065
  9. ESTER C [CALCIUM ASCORBATE] [Concomitant]
     Active Substance: CALCIUM ASCORBATE
  10. ZOMETA [Concomitant]
     Active Substance: ZOLEDRONIC ACID
  11. EXEMESTANE. [Suspect]
     Active Substance: EXEMESTANE
     Indication: BREAST CANCER METASTATIC
     Route: 065
  12. CALCIUM [Concomitant]
     Active Substance: CALCIUM
  13. MAGNESIUM [Concomitant]
     Active Substance: MAGNESIUM
  14. LETROZOLE. [Suspect]
     Active Substance: LETROZOLE
     Indication: BREAST CANCER METASTATIC
     Route: 065
  15. CONVALLARIA MAJALIS/CRATAEGUSLAEVIGATA/PROXYPHYLLINE [Concomitant]
  16. METHADONE [Concomitant]
     Active Substance: METHADONE HYDROCHLORIDE

REACTIONS (6)
  - Fatigue [Unknown]
  - Neutropenia [Unknown]
  - Malignant neoplasm progression [Unknown]
  - Pain [Unknown]
  - Asthenia [Unknown]
  - Tumour marker increased [Unknown]
